FAERS Safety Report 8916922 (Version 1)
Quarter: 2012Q4

REPORT INFORMATION
  Report Type: 
  Country: JP (occurrence: JP)
  Receive Date: 20121120
  Receipt Date: 20121212
  Transmission Date: 20130627
  Serious: Yes (Life-Threatening)
  Sender: FDA-Public Use
  Company Number: JP-ASTRAZENECA-2012SE87573

PATIENT
  Age: 23766 Day
  Sex: Male

DRUGS (86)
  1. MEROPEN [Suspect]
     Indication: PNEUMONIA
     Route: 042
     Dates: start: 20120305, end: 20120306
  2. MEROPEN [Suspect]
     Indication: INFECTIOUS PLEURAL EFFUSION
     Route: 042
     Dates: start: 20120305, end: 20120306
  3. MEROPEN [Suspect]
     Indication: PNEUMONIA
     Route: 042
     Dates: start: 20120307
  4. MEROPEN [Suspect]
     Indication: INFECTIOUS PLEURAL EFFUSION
     Route: 042
     Dates: start: 20120307
  5. LOXONIN [Concomitant]
     Route: 048
     Dates: start: 20120301, end: 20120304
  6. LOXONIN [Concomitant]
     Route: 048
     Dates: start: 20120305, end: 20120305
  7. LOXONIN [Concomitant]
     Route: 048
     Dates: start: 20120306, end: 20120306
  8. MUCOSTA [Concomitant]
     Route: 048
     Dates: start: 20120301, end: 20120304
  9. MUCOSTA [Concomitant]
     Route: 048
     Dates: start: 20120306, end: 20120306
  10. HOKUNALIN TAPE [Concomitant]
     Dates: start: 20120301, end: 20120304
  11. HOKUNALIN TAPE [Concomitant]
     Dates: start: 20120305, end: 20120305
  12. HOKUNALIN TAPE [Concomitant]
     Dates: start: 20120306, end: 20120310
  13. BISOLVON [Concomitant]
     Dates: start: 20120302, end: 20120304
  14. BISOLVON [Concomitant]
     Dates: start: 20120305
  15. MEPTIN [Concomitant]
     Dates: start: 20120302, end: 20120304
  16. MEPTIN [Concomitant]
     Dates: start: 20120305
  17. TAKEPRON [Concomitant]
     Route: 048
     Dates: start: 20120303, end: 20120304
  18. TAKEPRON [Concomitant]
     Route: 048
     Dates: start: 20120305, end: 20120306
  19. KN NO.3 (MAINTENANCE MEDIUM) [Concomitant]
     Dates: start: 20120303, end: 20120304
  20. KN NO.3 (MAINTENANCE MEDIUM) [Concomitant]
     Dates: start: 20120305, end: 20120307
  21. LENDORMIN D [Concomitant]
     Route: 048
     Dates: start: 20120305, end: 20120305
  22. ASTOMIN [Concomitant]
     Route: 048
     Dates: start: 20120305, end: 20120306
  23. DIFLUCAN [Concomitant]
     Route: 048
     Dates: start: 20120305, end: 20120308
  24. HUMALOG [Concomitant]
     Route: 058
     Dates: start: 20120305, end: 20120309
  25. LASIX [Concomitant]
     Dates: start: 20120305, end: 20120305
  26. LASIX [Concomitant]
     Dates: start: 20120306, end: 20120307
  27. LASIX [Concomitant]
     Dates: start: 20120316, end: 20120316
  28. HANP [Concomitant]
     Dates: start: 20120305, end: 20120305
  29. HANP [Concomitant]
     Dates: start: 20120306, end: 20120306
  30. HANP [Concomitant]
     Dates: start: 20120307, end: 20120309
  31. HANP [Concomitant]
     Dates: start: 20120310, end: 20120310
  32. HANP [Concomitant]
     Dates: start: 20120311, end: 20120312
  33. HANP [Concomitant]
     Dates: start: 20120313, end: 20120313
  34. SOLDACTONE [Concomitant]
     Dates: start: 20120305, end: 20120305
  35. ATARAX-P [Concomitant]
     Dates: start: 20120305, end: 20120305
  36. ATARAX-P [Concomitant]
     Dates: start: 20120315, end: 20120317
  37. ATARAX-P [Concomitant]
     Dates: start: 20120319, end: 20120319
  38. SOLU-MEDROL [Concomitant]
     Dates: start: 20120305, end: 20120305
  39. SOLU-MEDROL [Concomitant]
     Dates: start: 20120306, end: 20120306
  40. SOLU-MEDROL [Concomitant]
     Dates: start: 20120307, end: 20120307
  41. ELASPOL [Concomitant]
     Dates: start: 20120305, end: 20120305
  42. ELASPOL [Concomitant]
     Dates: start: 20120306, end: 20120306
  43. DORMICUM [Concomitant]
     Dates: start: 20120306, end: 20120306
  44. DORMICUM [Concomitant]
     Dates: start: 20120307, end: 20120308
  45. DORMICUM [Concomitant]
     Dates: start: 20120309, end: 20120309
  46. DORMICUM [Concomitant]
     Dates: start: 20120311, end: 20120313
  47. DORMICUM [Concomitant]
     Dates: start: 20120306, end: 20120306
  48. DORMICUM [Concomitant]
     Dates: start: 20120308, end: 20120308
  49. DORMICUM [Concomitant]
     Dates: start: 20120310, end: 20120310
  50. DORMICUM [Concomitant]
     Dates: start: 20120312, end: 20120312
  51. LEPETAN [Concomitant]
     Dates: start: 20120306, end: 20120308
  52. LEPETAN [Concomitant]
     Dates: start: 20120309, end: 20120309
  53. LEPETAN [Concomitant]
     Dates: start: 20120311, end: 20120313
  54. LEPETAN [Concomitant]
     Dates: start: 20120312, end: 20120312
  55. MUSCULAX [Concomitant]
     Dates: start: 20120306, end: 20120306
  56. MIRACLID [Concomitant]
     Dosage: 300 iu daily
     Dates: start: 20120306, end: 20120306
  57. DIGILANOGEN C [Concomitant]
     Dates: start: 20120306, end: 20120306
  58. CAPISTEN [Concomitant]
     Route: 030
     Dates: start: 20120307, end: 20120307
  59. CAPISTEN [Concomitant]
     Route: 030
     Dates: start: 20120309, end: 20120309
  60. FUNGUARD [Concomitant]
     Dates: start: 20120307, end: 20120308
  61. FUNGUARD [Concomitant]
     Dates: start: 20120309, end: 20120309
  62. FUNGUARD [Concomitant]
     Dates: start: 20120310
  63. KN NO.1 (INITIATION MEDIUM) [Concomitant]
     Dates: start: 20120307, end: 20120310
  64. PREDOPA [Concomitant]
     Dates: start: 20120307, end: 20120308
  65. PREDOPA [Concomitant]
     Dates: start: 20120309, end: 20120309
  66. PREDOPA [Concomitant]
     Dates: start: 20120310, end: 20120310
  67. PREDOPA [Concomitant]
     Dates: start: 20120313, end: 20120313
  68. ANHIBA [Concomitant]
  69. HUMULIN R [Concomitant]
     Dates: start: 20120309
  70. FOY [Concomitant]
     Dates: start: 20120309, end: 20120319
  71. GASTER [Concomitant]
     Dates: start: 20120310
  72. WHITE PETROLATUM [Concomitant]
     Dates: start: 20120311
  73. BFLUID [Concomitant]
     Dates: start: 20120311, end: 20120311
  74. PLATELET CONCENTRATE (IRREDIATED) [Concomitant]
     Dates: start: 20120311, end: 20120311
  75. FRESH FROZEN PLASMA-LEUKOCYTES REDUCED [Concomitant]
     Dates: start: 20120312, end: 20120313
  76. ELNEOPA NO.1 [Concomitant]
     Dates: start: 20120313
  77. ANEXATE [Concomitant]
     Dates: start: 20120314, end: 20120314
  78. SERENACE [Concomitant]
     Dates: start: 20120315, end: 20120315
  79. SERENACE [Concomitant]
     Dates: start: 20120317, end: 20120317
  80. SILECE [Concomitant]
     Dates: start: 20120317, end: 20120317
  81. HEPAFLUSH [Concomitant]
     Route: 042
     Dates: start: 20120320
  82. PREDONINE [Concomitant]
     Dates: start: 20120308, end: 20120310
  83. PREDONINE [Concomitant]
     Dates: start: 20120311, end: 20120313
  84. PREDONINE [Concomitant]
     Dates: start: 20120314, end: 20120314
  85. PREDONINE [Concomitant]
     Dates: start: 20120317, end: 20120319
  86. PREDONINE [Concomitant]
     Dates: start: 20120320

REACTIONS (1)
  - Renal impairment [Recovering/Resolving]
